FAERS Safety Report 23200155 (Version 1)
Quarter: 2023Q4

REPORT INFORMATION
  Report Type: Spontaneous
  Country: CN (occurrence: CN)
  Receive Date: 20231118
  Receipt Date: 20231118
  Transmission Date: 20240109
  Serious: Yes (Hospitalization)
  Sender: FDA-Public Use
  Company Number: CN-JNJFOC-20231128301

PATIENT
  Age: 57 Year
  Sex: Female

DRUGS (6)
  1. CHILDRENS MOTRIN [Suspect]
     Active Substance: IBUPROFEN
     Indication: Pyrexia
     Route: 065
     Dates: start: 20231018, end: 20231018
  2. ACETAMINOPHEN\CHLORPHENIRAMINE MALEATE\DEXTROMETHORPHAN HYDROBROMIDE\P [Suspect]
     Active Substance: ACETAMINOPHEN\CHLORPHENIRAMINE MALEATE\DEXTROMETHORPHAN HYDROBROMIDE\PSEUDOEPHEDRINE
     Indication: Pyrexia
     Route: 048
     Dates: start: 20231019, end: 20231021
  3. HERBALS [Suspect]
     Active Substance: HERBALS
     Indication: Pyrexia
     Route: 048
     Dates: start: 20231018
  4. HERBALS [Suspect]
     Active Substance: HERBALS
     Indication: Cough
     Route: 048
     Dates: start: 20231018, end: 20231021
  5. ETIMICIN SULFATE [Concomitant]
     Active Substance: ETIMICIN SULFATE
     Indication: Pyrexia
     Route: 065
     Dates: start: 20231022
  6. LYSINE ACETYLSALICYLATE [Concomitant]
     Active Substance: ASPIRIN DL-LYSINE
     Indication: Pyrexia
     Route: 042
     Dates: start: 20231022

REACTIONS (3)
  - Product administered to patient of inappropriate age [Recovering/Resolving]
  - Inappropriate schedule of product administration [Recovering/Resolving]
  - Drug eruption [Recovering/Resolving]

NARRATIVE: CASE EVENT DATE: 20231018
